FAERS Safety Report 9985624 (Version 2)
Quarter: 2014Q1

REPORT INFORMATION
  Report Type: Report from Study
  Country: US (occurrence: US)
  Receive Date: 20140307
  Receipt Date: 20140307
  Transmission Date: 20141002
  Serious: Yes (Hospitalization)
  Sender: FDA-Public Use
  Company Number: US-BAYER-2014-018586

PATIENT
  Age: 48 Year
  Sex: Female

DRUGS (2)
  1. STIVARGA [Suspect]
     Indication: COLORECTAL CANCER
     Dosage: DAILY DOSE 160 MG
     Route: 048
     Dates: start: 201401, end: 20140130
  2. STIVARGA [Suspect]
     Indication: COLORECTAL CANCER
     Dosage: 160 MG DAILY
     Route: 048

REACTIONS (5)
  - Pneumonia [None]
  - Nausea [None]
  - Vomiting [None]
  - Stomatitis [None]
  - Pain in extremity [None]
